FAERS Safety Report 9495865 (Version 1)
Quarter: 2013Q3

REPORT INFORMATION
  Report Type: Spontaneous
  Country: NL (occurrence: NL)
  Receive Date: 20130903
  Receipt Date: 20130903
  Transmission Date: 20140515
  Serious: Yes (Other)
  Sender: FDA-Public Use
  Company Number: PHHY2013NL092715

PATIENT
  Age: 55 Year
  Sex: Female

DRUGS (3)
  1. PAROXETINE [Suspect]
     Dosage: 20 MG, PER DAY
     Dates: start: 201006
  2. CARBAMAZEPINE [Concomitant]
     Dosage: 200-800 MG, PER DAY
     Dates: start: 201007
  3. DEPAKINE [Concomitant]
     Dosage: 1000 MG, PER DAY
     Dates: start: 201012

REACTIONS (3)
  - Female orgasmic disorder [Unknown]
  - Urinary incontinence [Unknown]
  - Vaginal discharge [Unknown]
